FAERS Safety Report 24567187 (Version 2)
Quarter: 2025Q3

REPORT INFORMATION
  Report Type: Report from Study
  Country: CO (occurrence: CO)
  Receive Date: 20241030
  Receipt Date: 20250802
  Transmission Date: 20251020
  Serious: Yes (Death, Hospitalization, Other)
  Sender: ALEXION PHARMACEUTICALS
  Company Number: CO-AstraZeneca-CH-00727363A

PATIENT
  Age: 82 Year
  Sex: Male

DRUGS (1)
  1. OLAPARIB [Suspect]
     Active Substance: OLAPARIB
     Indication: Prostate cancer
     Dosage: 300 MILLIGRAM, Q12H
     Dates: start: 20240312

REACTIONS (3)
  - Cardiac disorder [Unknown]
  - Cardiac arrest [Fatal]
  - Pain in extremity [Unknown]

NARRATIVE: CASE EVENT DATE: 20241012
